FAERS Safety Report 7245832-X (Version None)
Quarter: 2011Q1

REPORT INFORMATION
  Report Type: 
  Country: None (occurrence: None)
  Receive Date: 20110126
  Receipt Date: 20110118
  Transmission Date: 20110831
  Serious: Yes (Hospitalization, Other)
  Sender: FDA-Public Use
  Company Number: US-MERCK-0808USA01435

PATIENT
  Age: 48 Year
  Sex: Female
  Weight: 84 kg

DRUGS (8)
  1. FOSAMAX [Suspect]
     Indication: OSTEOPOROSIS
     Route: 048
     Dates: start: 19980101, end: 20020601
  2. NEURONTIN [Concomitant]
     Route: 065
  3. ACTONEL [Suspect]
     Route: 048
     Dates: start: 20020601
  4. FOSAMAX [Suspect]
     Route: 048
     Dates: start: 20050601, end: 20060601
  5. FOSAMAX PLUS D [Suspect]
     Indication: OSTEOPOROSIS
     Route: 048
     Dates: start: 20060619, end: 20060101
  6. BONIVA [Suspect]
     Indication: OSTEOPOROSIS
     Route: 065
     Dates: start: 20070601, end: 20070901
  7. FOSAMAX [Suspect]
     Route: 048
     Dates: start: 20020101
  8. TENORMIN [Concomitant]
     Route: 065

REACTIONS (29)
  - SINUS DISORDER [None]
  - REFLUX OESOPHAGITIS [None]
  - PALPITATIONS [None]
  - OSTEONECROSIS OF JAW [None]
  - SPINAL FRACTURE [None]
  - UTERINE DISORDER [None]
  - GASTRIC POLYPS [None]
  - GASTROOESOPHAGEAL REFLUX DISEASE [None]
  - OSTEOARTHRITIS [None]
  - IMPAIRED HEALING [None]
  - MITRAL VALVE PROLAPSE [None]
  - OSTEOMYELITIS [None]
  - VITAMIN D DECREASED [None]
  - OSTEOPENIA [None]
  - HIATUS HERNIA [None]
  - HYPERPLASIA [None]
  - VIRAL INFECTION [None]
  - SIALOADENITIS [None]
  - BACK PAIN [None]
  - COMPRESSION FRACTURE [None]
  - DEHYDRATION [None]
  - DIVERTICULUM [None]
  - FOOT FRACTURE [None]
  - PARAKERATOSIS [None]
  - SPINAL OSTEOARTHRITIS [None]
  - BENIGN BONE NEOPLASM [None]
  - HERPES SIMPLEX [None]
  - BACK INJURY [None]
  - WEIGHT INCREASED [None]
